FAERS Safety Report 8774374 (Version 3)
Quarter: 2012Q4

REPORT INFORMATION
  Report Type: 
  Country: US (occurrence: US)
  Receive Date: 20120907
  Receipt Date: 20121113
  Transmission Date: 20130627
  Serious: Yes (Hospitalization, Other)
  Sender: FDA-Public Use
  Company Number: US-ELI_LILLY_AND_COMPANY-US201209000577

PATIENT
  Sex: Female

DRUGS (2)
  1. HUMULIN NPH [Suspect]
     Indication: DIABETES MELLITUS
     Dosage: UNK UNK, unknown
  2. HUMULIN REGULAR [Suspect]
     Indication: DIABETES MELLITUS
     Dosage: UNK UNK, unknown

REACTIONS (6)
  - Convulsion [Unknown]
  - Blood glucose decreased [Unknown]
  - Blood glucose increased [Unknown]
  - Stress [Unknown]
  - Visual acuity reduced [Unknown]
  - Medication error [Recovered/Resolved]
